FAERS Safety Report 4899898-2 (Version None)
Quarter: 2006Q1

REPORT INFORMATION
  Report Type: 
  Country: None (occurrence: None)
  Receive Date: 20060118
  Receipt Date: 20050928
  Transmission Date: 20060701
  Serious: No
  Sender: FDA-Public Use
  Company Number: 2005001893

PATIENT
  Age: 89 Year
  Sex: Female

DRUGS (1)
  1. TARCEVA [Suspect]
     Indication: LUNG NEOPLASM MALIGNANT
     Dosage: 150 MG (QD), ORAL
     Route: 048

REACTIONS (6)
  - ACNE [None]
  - DIARRHOEA [None]
  - DYSPEPSIA [None]
  - ORAL DISCOMFORT [None]
  - PAIN [None]
  - PRURITUS [None]
